FAERS Safety Report 15713102 (Version 4)
Quarter: 2022Q3

REPORT INFORMATION
  Report Type: Report from Study
  Country: JP (occurrence: None)
  Receive Date: 20181212
  Receipt Date: 20220808
  Transmission Date: 20221026
  Serious: Yes (Hospitalization)
  Sender: FDA-Public Use
  Company Number: JP-EISAI MEDICAL RESEARCH-EC-2018-049024

PATIENT
  Age: 55 Year
  Sex: Female
  Weight: 51 kg

DRUGS (10)
  1. ERIBULIN [Suspect]
     Active Substance: ERIBULIN
     Indication: Adenoid cystic carcinoma
     Route: 041
     Dates: start: 20181128, end: 20181128
  2. ERIBULIN [Suspect]
     Active Substance: ERIBULIN
     Route: 041
     Dates: start: 20181226
  3. ERIBULIN [Suspect]
     Active Substance: ERIBULIN
     Route: 041
     Dates: end: 20220420
  4. OXYCODONE HYDROCHLORIDE [Concomitant]
     Active Substance: OXYCODONE HYDROCHLORIDE
  5. OXINORM [Concomitant]
  6. LOXOPROFEN [Concomitant]
     Active Substance: LOXOPROFEN
  7. TRAMADOL [Concomitant]
     Active Substance: TRAMADOL
  8. LANSOPRAZOLE [Concomitant]
     Active Substance: LANSOPRAZOLE
  9. LOXOPROFEN SODIUM [Concomitant]
     Active Substance: LOXOPROFEN SODIUM
  10. SENNOSIDES [Concomitant]
     Active Substance: SENNOSIDES

REACTIONS (2)
  - Febrile neutropenia [Recovered/Resolved]
  - Periodontitis [Recovered/Resolved]

NARRATIVE: CASE EVENT DATE: 20181207
